FAERS Safety Report 4798323-X (Version None)
Quarter: 2005Q4

REPORT INFORMATION
  Report Type: 
  Country: None (occurrence: None)
  Receive Date: 20051011
  Receipt Date: 20050923
  Transmission Date: 20060501
  Serious: Yes (Hospitalization)
  Sender: FDA-Public Use
  Company Number: FR-2005-019816

PATIENT
  Age: 34 Year
  Sex: Female

DRUGS (1)
  1. BETAFERON (INTERFERON BETA-1B) INJECTION, 250UG [Suspect]
     Indication: MULTIPLE SCLEROSIS
     Dosage: 250 UG, EVERY 2D, SUBCUTAENOUS
     Route: 058

REACTIONS (1)
  - SYNCOPE VASOVAGAL [None]
